FAERS Safety Report 14347745 (Version 1)
Quarter: 2018Q1

REPORT INFORMATION
  Report Type: Spontaneous
  Country: US (occurrence: US)
  Receive Date: 20180102
  Receipt Date: 20180102
  Transmission Date: 20180509
  Serious: Yes (Other)
  Sender: FDA-Public Use
  Company Number: None

PATIENT
  Age: 65 Year
  Sex: Female

DRUGS (1)
  1. IBRANCE [Suspect]
     Active Substance: PALBOCICLIB
     Indication: ILL-DEFINED DISORDER
     Dosage: 125 MG TAKE 125 MG ONCE DAILY FOR 21 DAYS ON ORAL
     Route: 048
     Dates: start: 20170928, end: 20180102

REACTIONS (2)
  - Therapy cessation [None]
  - Therapy non-responder [None]

NARRATIVE: CASE EVENT DATE: 20180102
